FAERS Safety Report 9737397 (Version 2)
Quarter: 2014Q2

REPORT INFORMATION
  Report Type: Spontaneous
  Country: US (occurrence: US)
  Receive Date: 20131206
  Receipt Date: 20140509
  Transmission Date: 20141212
  Serious: Yes (Hospitalization, Disabling, Other)
  Sender: FDA-Public Use
  Company Number: US-009507513-1312USA001270

PATIENT
  Sex: Female
  Weight: 83.45 kg

DRUGS (4)
  1. FOSAMAX [Suspect]
     Indication: OSTEOPOROSIS PROPHYLAXIS
     Dosage: UNK
     Route: 048
     Dates: start: 2000, end: 200802
  2. FOSAMAX [Suspect]
     Indication: OSTEOPOROSIS
  3. ALENDRONATE SODIUM [Suspect]
     Indication: OSTEOPOROSIS PROPHYLAXIS
     Dosage: 70 MG, QW
     Route: 048
     Dates: start: 200802, end: 2012
  4. ALENDRONATE SODIUM [Suspect]
     Indication: OSTEOPOROSIS

REACTIONS (17)
  - Femur fracture [Unknown]
  - Intramedullary rod insertion [Unknown]
  - Femur fracture [Unknown]
  - Hip fracture [Unknown]
  - Cholecystectomy [Unknown]
  - Osteoporosis [Unknown]
  - Low turnover osteopathy [Unknown]
  - Neuropathy peripheral [Unknown]
  - Blood cholesterol increased [Unknown]
  - Hypothyroidism [Unknown]
  - Synovial cyst [Unknown]
  - Hysterectomy [Unknown]
  - Tonsillectomy [Unknown]
  - Anaemia [Unknown]
  - Asthma [Unknown]
  - Rheumatoid arthritis [Unknown]
  - Phlebolith [Unknown]
